FAERS Safety Report 6459945-3 (Version None)
Quarter: 2009Q4

REPORT INFORMATION
  Report Type: 
  Country: None (occurrence: None)
  Receive Date: 20091129
  Receipt Date: 20091116
  Transmission Date: 20100525
  Serious: Yes (Hospitalization, Other)
  Sender: FDA-Public Use
  Company Number: PHEH2009US16190

PATIENT
  Sex: Female

DRUGS (4)
  1. RECLAST [Suspect]
     Indication: OSTEOPOROSIS
     Dosage: 5 MG, ONCE/SINGLE
     Dates: start: 20091110, end: 20091110
  2. SYNTHROID [Concomitant]
  3. FOLIC ACID [Concomitant]
  4. PHENOBARBITAL SOD INJ [Concomitant]
     Dosage: 30 MG A.M., 60 MG HS

REACTIONS (11)
  - ARTHRALGIA [None]
  - BACK PAIN [None]
  - CHILLS [None]
  - DIZZINESS [None]
  - DYSSTASIA [None]
  - HAEMOGLOBIN DECREASED [None]
  - HYPOTENSION [None]
  - JOINT SWELLING [None]
  - MUSCULOSKELETAL PAIN [None]
  - PELVIC PAIN [None]
  - PYREXIA [None]
